FAERS Safety Report 11366013 (Version 3)
Quarter: 2015Q4

REPORT INFORMATION
  Report Type: Report from Study
  Country: US (occurrence: US)
  Receive Date: 20150811
  Receipt Date: 20151013
  Transmission Date: 20160304
  Serious: Yes (Hospitalization, Other)
  Sender: FDA-Public Use
  Company Number: US-BAYER-2015-390006

PATIENT
  Age: 59 Year
  Sex: Female

DRUGS (3)
  1. XARELTO [Suspect]
     Active Substance: RIVAROXABAN
     Dosage: UNK
  2. NEXAVAR [Suspect]
     Active Substance: SORAFENIB
     Indication: HEPATIC CANCER
     Dosage: 400 MG, BID
     Route: 048
  3. NEXAVAR [Suspect]
     Active Substance: SORAFENIB
     Indication: HEPATIC CANCER
     Dosage: 400 MG, BID
     Route: 048

REACTIONS (6)
  - Epistaxis [Recovered/Resolved]
  - Haematemesis [Recovered/Resolved]
  - Gastric ulcer [None]
  - Hepatocellular carcinoma [None]
  - Vomiting [None]
  - Drug ineffective [None]

NARRATIVE: CASE EVENT DATE: 201506
